FAERS Safety Report 8767340 (Version 1)
Quarter: 2012Q4

REPORT INFORMATION
  Report Type: 
  Country: DE (occurrence: DE)
  Receive Date: 20120904
  Receipt Date: 20120904
  Transmission Date: 20130627
  Serious: Yes (Other)
  Sender: FDA-Public Use
  Company Number: DE-GLAXOSMITHKLINE-D0076915A

PATIENT
  Sex: Male

DRUGS (2)
  1. PAROXETIN RATIOPHARM [Suspect]
     Indication: DEPRESSION
     Dosage: 20MG Unknown
     Route: 048
     Dates: end: 200604
  2. BISOHEXAL [Concomitant]
     Dosage: 8.75MG Per day
     Route: 065
     Dates: start: 200407

REACTIONS (6)
  - Altered state of consciousness [Unknown]
  - Altered state of consciousness [Unknown]
  - Loss of consciousness [Unknown]
  - Dizziness [Unknown]
  - Anxiety [Unknown]
  - Fall [Unknown]
